FAERS Safety Report 9643559 (Version 2)
Quarter: 2013Q4

REPORT INFORMATION
  Report Type: Spontaneous
  Country: JP (occurrence: JP)
  Receive Date: 20131024
  Receipt Date: 20131031
  Transmission Date: 20140711
  Serious: Yes (Disabling)
  Sender: FDA-Public Use
  Company Number: JP-SA-2013SA105875

PATIENT
  Age: 62 Year
  Sex: Male
  Weight: 50 kg

DRUGS (5)
  1. CISPLATIN [Suspect]
     Indication: HYPOPHARYNGEAL CANCER
     Route: 042
     Dates: start: 20121015, end: 20121015
  2. FLUOROURACIL [Suspect]
     Indication: HYPOPHARYNGEAL CANCER
     Route: 042
     Dates: start: 20121015, end: 20121018
  3. TAXOTERE [Suspect]
     Indication: HYPOPHARYNGEAL CANCER
     Route: 042
     Dates: start: 20121015, end: 20121015
  4. THERAPEUTIC RADIOPHARMACEUTICALS [Concomitant]
     Indication: HYPOPHARYNGEAL CANCER
     Dosage: 30 GY
     Dates: start: 20121019, end: 20121130
  5. THERAPEUTIC RADIOPHARMACEUTICALS [Concomitant]
     Indication: HYPOPHARYNGEAL CANCER
     Dosage: 40 GY
     Dates: start: 20130108, end: 20130129

REACTIONS (12)
  - Glomerulonephritis rapidly progressive [Recovering/Resolving]
  - Protein urine present [Recovered/Resolved]
  - Blood urine present [Unknown]
  - Albumin urine present [Unknown]
  - Nephrotic syndrome [Unknown]
  - Renal impairment [Recovering/Resolving]
  - Blood creatinine increased [Unknown]
  - Oedema peripheral [Recovered/Resolved]
  - Oliguria [Recovering/Resolving]
  - Hypertension [Recovering/Resolving]
  - Blood urea increased [Recovering/Resolving]
  - Glucose urine present [Recovering/Resolving]
